FAERS Safety Report 13165003 (Version 1)
Quarter: 2017Q1

REPORT INFORMATION
  Report Type: Spontaneous
  Country: PT (occurrence: ES)
  Receive Date: 20170130
  Receipt Date: 20170130
  Transmission Date: 20170428
  Serious: Yes (Hospitalization)
  Sender: FDA-Public Use
  Company Number: PT-SUNOVION-2017SUN000319

PATIENT

DRUGS (11)
  1. SEGURIL [Concomitant]
     Active Substance: FUROSEMIDE
     Dosage: 20 MG, 4X / DAY
     Route: 042
     Dates: start: 20161124, end: 20161130
  2. METAMIZOLE MAGNESIUM [Concomitant]
     Active Substance: METAMIZOLE MAGNESIUM
     Indication: PAIN
     Dosage: UNK, AS NEEDED
     Route: 048
     Dates: start: 20160908
  3. ZEBINIX [Suspect]
     Active Substance: ESLICARBAZEPINE ACETATE
     Indication: TRIGEMINAL NEURALGIA
     Dosage: 600 MG, 2X / DAY
     Route: 048
     Dates: start: 20160908, end: 20161201
  4. FLUOXETINE [Interacting]
     Active Substance: FLUOXETINE HYDROCHLORIDE
     Indication: PRODUCT USED FOR UNKNOWN INDICATION
     Dosage: 20 MG, 1X / DAY
     Route: 048
     Dates: end: 20161201
  5. CARVEDILOL ACOST [Interacting]
     Active Substance: CARVEDILOL
     Indication: PRODUCT USED FOR UNKNOWN INDICATION
     Dosage: 1 DF, QD
     Route: 048
     Dates: end: 20161130
  6. AMLODIPINO NORMON [Concomitant]
     Dosage: 5 MG, 1X / DAY
     Route: 048
     Dates: start: 20160908, end: 20161130
  7. AMITRIPTYLINE [Concomitant]
     Active Substance: AMITRIPTYLINE
     Dosage: 25 MG, 2X / DAY
     Route: 048
  8. LYRICA [Interacting]
     Active Substance: PREGABALIN
     Indication: PRODUCT USED FOR UNKNOWN INDICATION
     Dosage: 75 MG,3X /DAY
     Route: 048
     Dates: start: 20160908
  9. ENALAPRIL DURBAN [Concomitant]
     Dosage: 10 MG, 1X / DAY
     Route: 048
     Dates: end: 20161130
  10. PARACETAMOL KERN [Concomitant]
     Indication: PAIN
     Dosage: 1000 MG, 3X / DAY
     Route: 048
  11. VESICARE [Concomitant]
     Active Substance: SOLIFENACIN SUCCINATE
     Dosage: 5 MG, 1X / DAY
     Route: 048
     Dates: end: 20161124

REACTIONS (14)
  - Inappropriate schedule of drug administration [Unknown]
  - Drug dose titration not performed [Unknown]
  - Cardiac failure [Recovering/Resolving]
  - Acute pulmonary oedema [Unknown]
  - Hyponatraemia [Recovered/Resolved]
  - Hypertension [Unknown]
  - Product use issue [Unknown]
  - Bradyarrhythmia [Recovered/Resolved with Sequelae]
  - Sinus bradycardia [Unknown]
  - Drug interaction [None]
  - Fall [Unknown]
  - Cardio-respiratory arrest [Recovered/Resolved]
  - Sinoatrial block [Unknown]
  - Dyspnoea [Unknown]

NARRATIVE: CASE EVENT DATE: 20160908
